FAERS Safety Report 9061391 (Version 1)
Quarter: 2013Q1

REPORT INFORMATION
  Report Type: Spontaneous
  Country: US (occurrence: None)
  Receive Date: 20130118
  Receipt Date: 20130118
  Transmission Date: 20140127
  Serious: Yes (Other)
  Sender: FDA-Public Use
  Company Number: US-1196123

PATIENT
  Age: 79 Year
  Sex: Female

DRUGS (2)
  1. TRIESENCE INJECTION (TRIAMCINOLONE 40 MG/ML) [Suspect]
     Indication: EYE OEDEMA
     Dosage: (1 DF TOTAL OS)
     Route: 031
     Dates: start: 20100714, end: 20100714
  2. LUCENTIS [Concomitant]

REACTIONS (5)
  - Visual field defect [None]
  - Visual impairment [None]
  - Eye injury [None]
  - Eye infection [None]
  - Superficial injury of eye [None]
